FAERS Safety Report 6188990-0 (Version None)
Quarter: 2009Q2

REPORT INFORMATION
  Report Type: 
  Country: None (occurrence: None)
  Receive Date: 20090511
  Receipt Date: 20090428
  Transmission Date: 20091009
  Serious: No
  Sender: FDA-Public Use
  Company Number: WAES 0610USA04236

PATIENT
  Sex: Female

DRUGS (1)
  1. DECADRON [Suspect]
     Indication: ATRIOVENTRICULAR BLOCK COMPLETE
     Dosage: 4 MG/DAILY/PO
     Route: 048

REACTIONS (2)
  - DRUG INEFFECTIVE [None]
  - MATERNAL DRUGS AFFECTING FOETUS [None]
